FAERS Safety Report 17089575 (Version 1)
Quarter: 2019Q4

REPORT INFORMATION
  Report Type: Spontaneous
  Country: US (occurrence: US)
  Receive Date: 20191030
  Receipt Date: 20191030
  Transmission Date: 20200122
  Serious: Yes (Hospitalization, Disabling)
  Sender: FDA-Public Use
  Company Number: None

PATIENT
  Age: 28 Year
  Sex: Male

DRUGS (2)
  1. ADDERALL [Suspect]
     Active Substance: AMPHETAMINE ASPARTATE\AMPHETAMINE SULFATE\DEXTROAMPHETAMINE SACCHARATE\DEXTROAMPHETAMINE SULFATE
     Dosage: ?          QUANTITY:10/20 MG/MG;?
     Route: 048
     Dates: start: 2011, end: 201611
  2. TYLENOL [Concomitant]
     Active Substance: ACETAMINOPHEN

REACTIONS (9)
  - Hypertension [None]
  - Hyperhidrosis [None]
  - Drug dependence [None]
  - Paranoia [None]
  - Dry mouth [None]
  - Quality of life decreased [None]
  - Dyspepsia [None]
  - Stress [None]
  - Mydriasis [None]

NARRATIVE: CASE EVENT DATE: 20140419
